FAERS Safety Report 8111213 (Version 2)
Quarter: 2012Q4

REPORT INFORMATION
  Report Type: 
  Country: JP (occurrence: JP)
  Receive Date: 20110829
  Receipt Date: 20120914
  Transmission Date: 20130627
  Serious: Yes (Disabling)
  Sender: FDA-Public Use
  Company Number: JP-SHIRE-SPV1-2010-01028

PATIENT

DRUGS (12)
  1. AGALSIDASE ALFA [Suspect]
     Indication: FABRY^S DISEASE
     Dosage: 14 mg, 1x/2wks
     Route: 041
     Dates: start: 20080617
  2. LOXONIN [Concomitant]
     Indication: ANALGESIC THERAPY
     Dosage: 60 mg, 1x/day:qd
     Route: 048
     Dates: start: 200806
  3. LOXONIN [Concomitant]
     Dosage: UNK, Unknown
     Route: 048
     Dates: start: 200806
  4. RENIVACE [Concomitant]
     Indication: CARDIAC DISORDER
     Dosage: 5 mg, 1x/day:qd
     Route: 048
  5. LIPITOR [Concomitant]
     Indication: PRODUCT USED FOR UNKNOWN INDICATION
     Dosage: 5 mg, 1x/day:qd
     Route: 048
     Dates: end: 20120305
  6. AMLODIN [Concomitant]
     Indication: PRODUCT USED FOR UNKNOWN INDICATION
     Dosage: 5 mg, 1x/day:qd
     Route: 048
  7. BAYASPIRIN [Concomitant]
     Indication: PRODUCT USED FOR UNKNOWN INDICATION
     Dosage: 100 mg, 1x/day:qd
     Route: 048
  8. ASPARA-CA [Concomitant]
     Indication: PRODUCT USED FOR UNKNOWN INDICATION
     Dosage: 200 mg, 1x/day:qd
     Route: 048
  9. ALFAROL [Concomitant]
     Indication: PRODUCT USED FOR UNKNOWN INDICATION
     Dosage: 1 mcg, 1x/day:qd
     Route: 048
     Dates: end: 20110808
  10. LENDORMIN [Concomitant]
     Indication: PRODUCT USED FOR UNKNOWN INDICATION
     Dosage: 0.25 mg, 1x/day:qd
     Route: 048
     Dates: start: 20080812, end: 20110808
  11. LENDORMIN [Concomitant]
     Dosage: UNK, Unknown
     Route: 048
     Dates: start: 20110808
  12. CALFINA [Concomitant]
     Indication: PRODUCT USED FOR UNKNOWN INDICATION
     Dosage: UNK, Unknown
     Route: 048
     Dates: start: 20110808

REACTIONS (4)
  - Lacunar infarction [Not Recovered/Not Resolved]
  - Malaise [Recovered/Resolved]
  - Fatigue [Recovered/Resolved]
  - Infusion related reaction [Recovered/Resolved]
